FAERS Safety Report 7965925-9 (Version None)
Quarter: 2011Q4

REPORT INFORMATION
  Report Type: 
  Country: None (occurrence: None)
  Receive Date: 20111208
  Receipt Date: 20111207
  Transmission Date: 20120403
  Serious: Yes (Hospitalization)
  Sender: FDA-Public Use
  Company Number: FR-GLAXOSMITHKLINE-B0767596A

PATIENT
  Sex: Female

DRUGS (5)
  1. IRBESARTAN [Concomitant]
     Dosage: 75MG PER DAY
     Route: 048
     Dates: start: 20100101
  2. VASTAREL [Concomitant]
     Dosage: 35MG TWICE PER DAY
     Route: 048
     Dates: start: 20100101, end: 20110718
  3. PREVISCAN [Concomitant]
     Dosage: 15MG PER DAY
     Route: 048
     Dates: start: 20000101
  4. PAROXETINE HCL [Suspect]
     Indication: PRODUCT USED FOR UNKNOWN INDICATION
     Dosage: 20MG PER DAY
     Route: 048
     Dates: start: 20110706, end: 20110717
  5. ATARAX [Concomitant]
     Dosage: 12.5MG TWICE PER DAY
     Route: 048
     Dates: start: 20110706, end: 20110718

REACTIONS (10)
  - ASTHENIA [None]
  - VOMITING [None]
  - FALL [None]
  - DECREASED APPETITE [None]
  - NAUSEA [None]
  - HYPONATRAEMIA [None]
  - DISORIENTATION [None]
  - CONFUSIONAL STATE [None]
  - GENERAL PHYSICAL HEALTH DETERIORATION [None]
  - AFFECTIVE DISORDER [None]
